FAERS Safety Report 21616963 (Version 4)
Quarter: 2023Q1

REPORT INFORMATION
  Report Type: Report from Study
  Country: US (occurrence: US)
  Receive Date: 20221118
  Receipt Date: 20230127
  Transmission Date: 20230417
  Serious: Yes (Other)
  Sender: FDA-Public Use
  Company Number: US-PFIZER INC-202101883243

PATIENT
  Age: 52 Year
  Sex: Female

DRUGS (3)
  1. IBRANCE [Suspect]
     Active Substance: PALBOCICLIB
     Indication: Breast cancer female
     Dosage: DAILY FOR 21 DAYS ON AND 7 DAYS OFF
     Route: 048
     Dates: start: 20211229, end: 202209
  2. IBRANCE [Suspect]
     Active Substance: PALBOCICLIB
     Dosage: DAILY FOR 21 DAYS ON AND 7 DAYS OFF
     Route: 048
     Dates: start: 20221112
  3. LETROZOLE [Concomitant]
     Active Substance: LETROZOLE
     Dosage: UNK, DAILY

REACTIONS (29)
  - Neuropathy peripheral [Recovering/Resolving]
  - Rectal haemorrhage [Not Recovered/Not Resolved]
  - Pneumonitis [Recovered/Resolved]
  - Atrial fibrillation [Unknown]
  - Suicidal ideation [Unknown]
  - Constipation [Not Recovered/Not Resolved]
  - Diarrhoea [Not Recovered/Not Resolved]
  - Nausea [Recovered/Resolved]
  - Muscle spasms [Not Recovered/Not Resolved]
  - Decreased appetite [Recovering/Resolving]
  - Abdominal distension [Recovering/Resolving]
  - Migraine [Recovering/Resolving]
  - Hypoaesthesia [Recovered/Resolved]
  - Musculoskeletal discomfort [Recovering/Resolving]
  - Dizziness [Recovering/Resolving]
  - Depression [Not Recovered/Not Resolved]
  - Pyrexia [Recovered/Resolved]
  - Chills [Recovered/Resolved]
  - Dry skin [Unknown]
  - Fatigue [Not Recovered/Not Resolved]
  - Rash [Unknown]
  - Skin fissures [Unknown]
  - Pain in extremity [Unknown]
  - Nail discolouration [Unknown]
  - Chest pain [Recovered/Resolved]
  - Bone pain [Not Recovered/Not Resolved]
  - Depressed mood [Not Recovered/Not Resolved]
  - Neoplasm progression [Unknown]
  - Product dose omission issue [Unknown]

NARRATIVE: CASE EVENT DATE: 20211201
